FAERS Safety Report 7849516-6 (Version None)
Quarter: 2011Q4

REPORT INFORMATION
  Report Type: 
  Country: None (occurrence: None)
  Receive Date: 20111024
  Receipt Date: 20111013
  Transmission Date: 20120403
  Serious: Yes (Hospitalization)
  Sender: FDA-Public Use
  Company Number: 2011-4205

PATIENT
  Age: 64 Year
  Sex: Male

DRUGS (1)
  1. APO-GOAMPOULES (APO-GO)(APOMORPHINE HYDROCHLORIDE) (APOMORPHINE [Suspect]
     Dosage: 6.4 MG/HR FOR 12 HRS (CONTINUOUS
     Dates: start: 20101001

REACTIONS (2)
  - RENAL FAILURE [None]
  - CEREBROVASCULAR ACCIDENT [None]
